FAERS Safety Report 6441879-1 (Version None)
Quarter: 2009Q4

REPORT INFORMATION
  Report Type: 
  Country: None (occurrence: None)
  Receive Date: 20091112
  Receipt Date: 20091028
  Transmission Date: 20100525
  Serious: Yes (Hospitalization)
  Sender: FDA-Public Use
  Company Number: 233579K09USA

PATIENT
  Sex: Male
  Weight: 1 kg

DRUGS (1)
  1. REBIF [Suspect]
     Indication: MULTIPLE SCLEROSIS
     Dosage: SUBCUTANEOUS
     Route: 058
     Dates: end: 20080416

REACTIONS (6)
  - CEREBRAL HAEMORRHAGE NEONATAL [None]
  - DYSPNOEA [None]
  - MATERNAL DRUGS AFFECTING FOETUS [None]
  - OPTIC NERVE DISORDER [None]
  - PREMATURE BABY [None]
  - SMALL FOR DATES BABY [None]
